FAERS Safety Report 18744781 (Version 2)
Quarter: 2021Q2

REPORT INFORMATION
  Report Type: Spontaneous
  Country: US (occurrence: US)
  Receive Date: 20210115
  Receipt Date: 20210510
  Transmission Date: 20210717
  Serious: Yes (Hospitalization, Other)
  Sender: FDA-Public Use
  Company Number: US-TEVA-2021-US-1869189

PATIENT
  Age: 55 Year
  Sex: Male
  Weight: 98 kg

DRUGS (19)
  1. VALSARTAN/HYDROCHLOROTHIAZIDE MYLAN [Suspect]
     Active Substance: HYDROCHLOROTHIAZIDE\VALSARTAN
     Indication: HYPERTENSION
     Dosage: 320/25 MG ONCE DAILY?VALSARTAN W/HYDROCHLOROTHIAZIDE MYLAN
     Route: 048
     Dates: start: 20130102, end: 20130402
  2. VALSARTAN/HYDROCHLOROTHIAZIDE QUALITEST [Suspect]
     Active Substance: HYDROCHLOROTHIAZIDE\VALSARTAN
     Indication: HYPERTENSION
     Dosage: 320/25 MG ONCE DAILY?VALSARTAN W/HYDROCHLOROTHIAZIDE QUALITEST
     Route: 048
     Dates: start: 20160630, end: 20160816
  3. VACCINE TDAP [Concomitant]
     Route: 030
     Dates: start: 20170410, end: 20170410
  4. VALSARTAN/HYDROCHLOROTHIAZIDE AUROBINDO [Suspect]
     Active Substance: HYDROCHLOROTHIAZIDE\VALSARTAN
     Dosage: 320/25 MG
     Route: 048
     Dates: start: 20170802, end: 20171206
  5. VALSARTAN W/HYDROCHLOROTHIAZIDE  ACTAVIS [Suspect]
     Active Substance: HYDROCHLOROTHIAZIDE\VALSARTAN
     Indication: HYPERTENSION
     Dosage: 320/25 MG, ONCE DAILY
     Route: 048
     Dates: start: 20150226, end: 20150920
  6. VALSARTAN W/HYDROCHLOROTHIAZIDE  ACTAVIS [Suspect]
     Active Substance: HYDROCHLOROTHIAZIDE\VALSARTAN
     Dosage: 320/25 MG
     Route: 048
     Dates: start: 20150921, end: 20160206
  7. VALSARTAN/HYDROCHLOROTHIAZIDE AUROBINDO [Suspect]
     Active Substance: HYDROCHLOROTHIAZIDE\VALSARTAN
     Indication: HYPERTENSION
     Dosage: 320/25 MG ONCE DAILY?VALSARTAN W/HYDROCHLOROTHIAZIDE AUROBINDO
     Route: 048
     Dates: start: 20160207, end: 20160530
  8. VALSARTAN/HYDROCHLOROTHIAZIDE AUROBINDO [Suspect]
     Active Substance: HYDROCHLOROTHIAZIDE\VALSARTAN
     Dosage: 320/25 MG
     Route: 048
     Dates: start: 20160817, end: 20170801
  9. RANITIDINE. [Concomitant]
     Active Substance: RANITIDINE
     Dosage: 150 MILLIGRAM DAILY; QHS,  EACH NIGHT AT BEDTIME
     Route: 048
  10. VALSARTAN/HYDROCHLOROTHIAZIDE SANDOZ [Suspect]
     Active Substance: HYDROCHLOROTHIAZIDE\VALSARTAN
     Indication: HYPERTENSION
     Dosage: 320/25 MG ONCE DAILY?VALSARTAN W/HYDROCHLOROTHIAZIDE SANDOZ
     Route: 048
     Dates: start: 20140617, end: 20150126
  11. BYSTOLIC [Concomitant]
     Active Substance: NEBIVOLOL HYDROCHLORIDE
     Indication: HYPERTENSION
     Dosage: 5 MILLIGRAM DAILY;
     Route: 048
     Dates: start: 20120321, end: 20130801
  12. AZOR [Concomitant]
     Active Substance: AMLODIPINE BESYLATE\OLMESARTAN MEDOXOMIL
     Indication: HYPERTENSION
     Dosage: 5?40MG ONCE DAILY
     Route: 048
     Dates: start: 20110715, end: 20120703
  13. FLU VACCINE [Concomitant]
     Active Substance: INFLUENZA VIRUS VACCINE
     Route: 030
  14. OMEPRAZOLE. [Concomitant]
     Active Substance: OMEPRAZOLE
     Dosage: 1 DOSAGE FORMS DAILY;
     Route: 048
  15. PROAIR HFA [Concomitant]
     Active Substance: ALBUTEROL SULFATE
     Dosage: 90MCG/INHALATION, QID, PRN
  16. VALSARTAN/HYDROCHLOROTHIAZIDE ALEMBIC [Suspect]
     Active Substance: HYDROCHLOROTHIAZIDE\VALSARTAN
     Indication: HYPERTENSION
     Dosage: 320/25 MG ONCE DAILY?VALSARTAN W/HYDROCHLOROTHIAZIDE ALEMBIC
     Route: 048
     Dates: start: 20171207, end: 20190107
  17. NEXIUM [Concomitant]
     Active Substance: ESOMEPRAZOLE MAGNESIUM
     Indication: GASTROOESOPHAGEAL REFLUX DISEASE
     Dosage: 40 MILLIGRAM DAILY;
     Route: 048
     Dates: start: 20120321, end: 20130221
  18. CYCLOBENZAPRINE. [Concomitant]
     Active Substance: CYCLOBENZAPRINE
     Dosage: 5 MILLIGRAM DAILY;
     Route: 048
  19. IBUPROFEN. [Concomitant]
     Active Substance: IBUPROFEN
     Dosage: 2400 MILLIGRAM DAILY;
     Route: 048

REACTIONS (5)
  - Gastrooesophageal reflux disease [Unknown]
  - Anxiety [Unknown]
  - Nausea [Unknown]
  - Eating disorder [Unknown]
  - Oesophageal carcinoma [Recovered/Resolved]

NARRATIVE: CASE EVENT DATE: 20181218
